FAERS Safety Report 5758642-7 (Version None)
Quarter: 2008Q2

REPORT INFORMATION
  Report Type: 
  Country: None (occurrence: None)
  Receive Date: 20080507
  Receipt Date: 20070807
  Transmission Date: 20081010
  Serious: Yes (Hospitalization)
  Sender: FDA-Public Use
  Company Number: 236582K07USA

PATIENT
  Age: 29 Year
  Sex: Male

DRUGS (5)
  1. REBIF [Suspect]
     Indication: MULTIPLE SCLEROSIS
     Dosage: 44 MCG, 3 IN 1 WEEKS, SUBCUTANEOUS
     Route: 058
     Dates: start: 20060303, end: 20080222
  2. CITALOPRAM (CITALOPRAM /00582601/) [Concomitant]
  3. PROVIGIL [Concomitant]
  4. TYLENOL (COTYLENOL) [Concomitant]
  5. BACLOFEN [Concomitant]

REACTIONS (6)
  - ABASIA [None]
  - INJECTION SITE MASS [None]
  - INJECTION SITE REACTION [None]
  - MULTIPLE SCLEROSIS RELAPSE [None]
  - MUSCLE SPASMS [None]
  - PAIN [None]
